FAERS Safety Report 11444671 (Version 2)
Quarter: 2015Q3

REPORT INFORMATION
  Report Type: Report from Study
  Country: US (occurrence: US)
  Receive Date: 20150902
  Receipt Date: 20150918
  Transmission Date: 20151125
  Serious: Yes (Hospitalization, Other)
  Sender: FDA-Public Use
  Company Number: US-GILEAD-2015-0170120

PATIENT
  Age: 6 Year
  Sex: Male

DRUGS (1)
  1. AMBRISENTAN [Suspect]
     Active Substance: AMBRISENTAN
     Indication: PULMONARY ARTERIAL HYPERTENSION
     Dosage: 5 MG, QD
     Route: 065
     Dates: start: 20140108

REACTIONS (4)
  - Pyrexia [Unknown]
  - Off label use [Not Recovered/Not Resolved]
  - Dehydration [Unknown]
  - Salmonellosis [Unknown]

NARRATIVE: CASE EVENT DATE: 20140108
